FAERS Safety Report 7783756-X (Version None)
Quarter: 2011Q3

REPORT INFORMATION
  Report Type: 
  Country: None (occurrence: None)
  Receive Date: 20110928
  Receipt Date: 20110920
  Transmission Date: 20111222
  Serious: Yes (Other)
  Sender: FDA-Public Use
  Company Number: US-ELI_LILLY_AND_COMPANY-US201106008848

PATIENT
  Sex: Female

DRUGS (6)
  1. HUMALOG [Suspect]
     Dosage: UNK
  2. HUMALOG [Suspect]
     Indication: TYPE 2 DIABETES MELLITUS
     Dosage: UNK
  3. HUMALOG [Suspect]
     Dosage: UNK
  4. XALATAN [Concomitant]
  5. HUMALOG [Suspect]
     Dosage: UNK
  6. LANTUS [Concomitant]
     Dosage: UNK

REACTIONS (5)
  - BLINDNESS [None]
  - MEMORY IMPAIRMENT [None]
  - VISUAL ACUITY REDUCED [None]
  - OPEN ANGLE GLAUCOMA [None]
  - MACULAR DEGENERATION [None]
